FAERS Safety Report 9384545 (Version 1)
Quarter: 2013Q3

REPORT INFORMATION
  Report Type: Spontaneous
  Country: BR (occurrence: BR)
  Receive Date: 20130705
  Receipt Date: 20130705
  Transmission Date: 20140515
  Serious: Yes (Other)
  Sender: FDA-Public Use
  Company Number: BR-LUNDBECK-DKLU1078678

PATIENT
  Age: 3 Year
  Sex: Male

DRUGS (2)
  1. SABRIL (TABLET) [Suspect]
     Indication: INFANTILE SPASMS
     Dosage: UNKNOWN; DAILY
     Route: 048
  2. TOPIRAMATE [Concomitant]
     Indication: PRODUCT USED FOR UNKNOWN INDICATION

REACTIONS (3)
  - Bronchopneumonia [Recovered/Resolved]
  - Convulsion [Unknown]
  - Muscular weakness [Unknown]
